FAERS Safety Report 7255916-8 (Version None)
Quarter: 2011Q1

REPORT INFORMATION
  Report Type: 
  Country: None (occurrence: None)
  Receive Date: 20110129
  Receipt Date: 20100504
  Transmission Date: 20110831
  Serious: No
  Sender: FDA-Public Use
  Company Number: US-ABBOTT-10P-163-0643171-00

PATIENT
  Sex: Male
  Weight: 117.13 kg

DRUGS (2)
  1. IRBESARTAN [Concomitant]
     Indication: PRODUCT USED FOR UNKNOWN INDICATION
  2. HUMIRA [Suspect]
     Indication: PSORIASIS
     Dates: start: 20080701, end: 20091201

REACTIONS (3)
  - INFLUENZA [None]
  - URINARY TRACT INFECTION [None]
  - STAPHYLOCOCCAL INFECTION [None]
